FAERS Safety Report 18081700 (Version 1)
Quarter: 2020Q3

REPORT INFORMATION
  Report Type: Report from Study
  Country: US (occurrence: US)
  Receive Date: 20200728
  Receipt Date: 20200728
  Transmission Date: 20201103
  Serious: Yes (Hospitalization)
  Sender: FDA-Public Use
  Company Number: US-BAUSCH-BL-2020-021101

PATIENT
  Age: 55 Year
  Sex: Female

DRUGS (3)
  1. XIFAXAN [Suspect]
     Active Substance: RIFAXIMIN
     Indication: GASTROINTESTINAL BACTERIAL INFECTION
  2. XIFAXAN [Suspect]
     Active Substance: RIFAXIMIN
     Indication: IRRITABLE BOWEL SYNDROME
     Dosage: STARTED WHILE IN HOSPITAL IN BETWEEN 05/JUL/2020 TO 15/JUL/2020
     Route: 065
     Dates: start: 202007
  3. RESTASIS [Concomitant]
     Active Substance: CYCLOSPORINE
     Indication: PRODUCT USED FOR UNKNOWN INDICATION
     Dosage: PRESCRIBED WHILE IN HOSPITAL
     Route: 065
     Dates: start: 202007

REACTIONS (8)
  - Myocardial infarction [Unknown]
  - Body temperature increased [Unknown]
  - Dementia [Not Recovered/Not Resolved]
  - Illness [Unknown]
  - Mood swings [Unknown]
  - Pain [Unknown]
  - Product use issue [Unknown]
  - Disease progression [Not Recovered/Not Resolved]

NARRATIVE: CASE EVENT DATE: 2020
